FAERS Safety Report 22222745 (Version 1)
Quarter: 2023Q2

REPORT INFORMATION
  Report Type: Spontaneous
  Country: IN (occurrence: IN)
  Receive Date: 20230418
  Receipt Date: 20230418
  Transmission Date: 20230721
  Serious: Yes (Other)
  Sender: FDA-Public Use
  Company Number: IN-ROCHE-2395131

PATIENT
  Age: 66 Year
  Sex: Female

DRUGS (3)
  1. CAPECITABINE [Suspect]
     Active Substance: CAPECITABINE
     Indication: Breast cancer
     Route: 048
  2. PERJETA [Suspect]
     Active Substance: PERTUZUMAB
     Indication: Breast cancer metastatic
     Route: 042
  3. TYKERB [Concomitant]
     Active Substance: LAPATINIB DITOSYLATE

REACTIONS (5)
  - Neoplasm skin [Unknown]
  - Pyrexia [Unknown]
  - Skin infection [Unknown]
  - Peripheral swelling [Unknown]
  - Rash [Unknown]
